FAERS Safety Report 6271921-2 (Version None)
Quarter: 2009Q3

REPORT INFORMATION
  Report Type: 
  Country: None (occurrence: None)
  Receive Date: 20090717
  Receipt Date: 20090710
  Transmission Date: 20100115
  Serious: Yes (Hospitalization)
  Sender: FDA-Public Use
  Company Number: US-ASTRAZENECA-2009UW10197

PATIENT
  Sex: Male
  Weight: 63.5 kg

DRUGS (17)
  1. PULMICORT FLEXHALER [Suspect]
     Indication: CHRONIC OBSTRUCTIVE PULMONARY DISEASE
     Route: 055
  2. TRILEPTAL [Concomitant]
     Route: 048
  3. NEURONTIN [Concomitant]
     Route: 048
  4. PLAVIX [Concomitant]
     Route: 048
  5. LOVASTATIN [Concomitant]
     Route: 048
  6. FLUNISOLIDE [Concomitant]
     Route: 055
  7. FLOMAX [Concomitant]
     Route: 048
  8. RANITIDINE [Concomitant]
     Route: 048
  9. DILTIAZEM [Concomitant]
     Route: 048
  10. ACTONEL [Concomitant]
     Route: 048
  11. ASPIRIN [Concomitant]
     Route: 048
  12. MIRALAX [Concomitant]
     Route: 048
  13. SEREVENT [Concomitant]
     Route: 048
  14. NITROGLYCERIN [Concomitant]
  15. POTASSIUM CHLORIDE [Concomitant]
  16. LEVAQUIN [Concomitant]
  17. ALBUTEROL W/IPRATROPIUM [Concomitant]

REACTIONS (2)
  - CLOSTRIDIAL INFECTION [None]
  - PNEUMONIA [None]
